FAERS Safety Report 4947860-3 (Version None)
Quarter: 2006Q1

REPORT INFORMATION
  Report Type: 
  Country: None (occurrence: None)
  Receive Date: 20060313
  Receipt Date: 20060227
  Transmission Date: 20060701
  Serious: Yes (Hospitalization)
  Sender: FDA-Public Use
  Company Number: GXKR2005PL02204

PATIENT
  Age: 80 Year
  Sex: Female
  Weight: 60 kg

DRUGS (10)
  1. KETOPROFEN [Suspect]
     Indication: INTERCOSTAL NEURALGIA
     Dosage: 300 MG, QD, ORAL
     Route: 048
     Dates: start: 20051124, end: 20051126
  2. DICLOREUM(DICLOFENAC SODIUM) [Suspect]
     Indication: INTERCOSTAL NEURALGIA
     Dosage: 200 MG, QD, ORAL
     Route: 048
     Dates: start: 20051124, end: 20051126
  3. CAPTOPRIL [Concomitant]
  4. FUROSEMIDE [Concomitant]
  5. POTASSIUM CHLORIDE [Concomitant]
  6. ISOSORBIDE MONONITRATE [Concomitant]
  7. DIGOXIN [Concomitant]
  8. SPIRONOL (SPIRONOLACTONE) [Concomitant]
  9. BISOPROLOL FUMARATE [Concomitant]
  10. RAMIPRIL [Concomitant]

REACTIONS (6)
  - ABDOMINAL PAIN UPPER [None]
  - CARDIAC FAILURE CONGESTIVE [None]
  - CONDITION AGGRAVATED [None]
  - DYSPNOEA [None]
  - EXERCISE TOLERANCE DECREASED [None]
  - GRAVITATIONAL OEDEMA [None]
